FAERS Safety Report 5958886-5 (Version None)
Quarter: 2008Q4

REPORT INFORMATION
  Report Type: 
  Country: None (occurrence: None)
  Receive Date: 20081118
  Receipt Date: 20081103
  Transmission Date: 20090506
  Serious: Yes (Death, Hospitalization)
  Sender: FDA-Public Use
  Company Number: 2008S1000376

PATIENT
  Age: 66 Year
  Sex: Female

DRUGS (2)
  1. CUBICIN [Suspect]
     Indication: ABSCESS
     Dosage: 6 MG/KG; Q24H; IV
     Route: 042
     Dates: start: 20080918, end: 20081009
  2. CUBICIN [Suspect]
     Indication: ARTHRITIS BACTERIAL
     Dosage: 6 MG/KG; Q24H; IV
     Route: 042
     Dates: start: 20080918, end: 20081009

REACTIONS (11)
  - ACUTE RESPIRATORY DISTRESS SYNDROME [None]
  - BONE MARROW DISORDER [None]
  - DIFFUSE ALVEOLAR DAMAGE [None]
  - EMBOLISM [None]
  - HAEMOGLOBIN DECREASED [None]
  - INTERNATIONAL NORMALISED RATIO DECREASED [None]
  - NO THERAPEUTIC RESPONSE [None]
  - PNEUMONIA [None]
  - PULMONARY EMBOLISM [None]
  - PULMONARY EOSINOPHILIA [None]
  - RESPIRATORY FAILURE [None]
